FAERS Safety Report 7680553-0 (Version None)
Quarter: 2011Q3

REPORT INFORMATION
  Report Type: 
  Country: None (occurrence: None)
  Receive Date: 20110812
  Receipt Date: 20110801
  Transmission Date: 20111222
  Serious: Yes (Life-Threatening, Hospitalization)
  Sender: FDA-Public Use
  Company Number: KR-SANOFI-AVENTIS-2011SA050288

PATIENT
  Age: 16 Year
  Sex: Male

DRUGS (2)
  1. VALPROATE SODIUM [Concomitant]
  2. MEPERIDINE HCL [Suspect]
     Indication: PAIN
     Route: 042

REACTIONS (7)
  - VENTRICULAR FIBRILLATION [None]
  - ELECTROCARDIOGRAM QT PROLONGED [None]
  - CHEST DISCOMFORT [None]
  - DIZZINESS [None]
  - BRADYCARDIA [None]
  - LOSS OF CONSCIOUSNESS [None]
  - VENTRICULAR TACHYCARDIA [None]
